FAERS Safety Report 7624464-5 (Version None)
Quarter: 2011Q3

REPORT INFORMATION
  Report Type: 
  Country: None (occurrence: None)
  Receive Date: 20110720
  Receipt Date: 20110719
  Transmission Date: 20111222
  Serious: Yes (Life-Threatening, Hospitalization, Other)
  Sender: FDA-Public Use
  Company Number: GB-BRISTOL-MYERS SQUIBB COMPANY-15911621

PATIENT
  Age: 86 Year
  Sex: Female

DRUGS (29)
  1. CLARITHROMYCIN [Concomitant]
  2. GAVISCON [Concomitant]
  3. LANSOPRAZOLE [Concomitant]
  4. NITROFURANTOIN [Concomitant]
  5. OMEPRAZOLE [Concomitant]
  6. ENOXAPARIN [Concomitant]
  7. MACROGOL 3350 [Concomitant]
  8. SODIUM HYDROGEN CARBONATE [Concomitant]
  9. ZOPICLONE [Concomitant]
  10. FUROSEMIDE [Concomitant]
  11. LACTULOSE [Concomitant]
  12. MIRTAZAPINE [Concomitant]
  13. CALCICHEW D3 [Concomitant]
  14. POTASSIUM CHLORIDE [Concomitant]
  15. SENNA [Concomitant]
  16. CHLORAMPHENICOL [Concomitant]
  17. SODIUM CHLORIDE [Concomitant]
  18. ERYTHROMYCIN [Concomitant]
  19. ABILIFY [Suspect]
     Indication: PSYCHOTIC DISORDER
     Route: 048
     Dates: start: 20091021, end: 20110622
  20. FERROUS FUMARATE [Concomitant]
  21. MAGNESIUM HYDROXIDE [Concomitant]
  22. ANUSOL HC [Concomitant]
  23. CHLORPHENIRAMINE MALEATE [Concomitant]
  24. DIAZEPAM [Concomitant]
  25. LORATADINE [Concomitant]
  26. TPN [Concomitant]
  27. ACETAMINOPHEN [Concomitant]
  28. TRIMETHOPRIM [Concomitant]
  29. FOLIC ACID [Concomitant]

REACTIONS (4)
  - PNEUMONIA ASPIRATION [None]
  - LARYNGOSPASM [None]
  - STRIDOR [None]
  - DYSPNOEA [None]
